FAERS Safety Report 15297205 (Version 1)
Quarter: 2018Q3

REPORT INFORMATION
  Report Type: Spontaneous
  Country: DE (occurrence: DE)
  Receive Date: 20180820
  Receipt Date: 20180820
  Transmission Date: 20181010
  Serious: Yes (Hospitalization)
  Sender: FDA-Public Use
  Company Number: DE-B.I. PHARMACEUTICALS,INC./RIDGEFIELD-2018-BI-041390

PATIENT
  Age: 80 Year
  Sex: Male

DRUGS (4)
  1. FLECAINIDA [Concomitant]
     Route: 065
     Dates: start: 20130725
  2. HEPARIN [Concomitant]
     Active Substance: HEPARIN SODIUM
     Indication: PRODUCT USED FOR UNKNOWN INDICATION
     Route: 065
  3. FLECAINIDA [Concomitant]
     Indication: PRODUCT USED FOR UNKNOWN INDICATION
     Route: 065
     Dates: start: 201307
  4. PRADAXA [Suspect]
     Active Substance: DABIGATRAN ETEXILATE MESYLATE
     Indication: ATRIAL FIBRILLATION
     Route: 065
     Dates: start: 20120323

REACTIONS (11)
  - Cystitis [Unknown]
  - Blood pressure increased [Unknown]
  - Renal cyst ruptured [Unknown]
  - Cardiovascular disorder [Unknown]
  - General physical health deterioration [Unknown]
  - Atrial fibrillation [Unknown]
  - Ataxia [Unknown]
  - Gastrointestinal disorder [Unknown]
  - Spinal cord disorder [Unknown]
  - Calculus urinary [Unknown]
  - Urinary bladder haemorrhage [Unknown]

NARRATIVE: CASE EVENT DATE: 20120717
